FAERS Safety Report 10404746 (Version 2)
Quarter: 2014Q3

REPORT INFORMATION
  Report Type: Spontaneous
  Country: DE (occurrence: DE)
  Receive Date: 20140824
  Receipt Date: 20140824
  Transmission Date: 20150326
  Serious: Yes (Other)
  Sender: FDA-Public Use
  Company Number: DE-BRISTOL-MYERS SQUIBB COMPANY-19795798

PATIENT
  Age: 30 Year
  Sex: Male

DRUGS (7)
  1. ABILIFY [Suspect]
     Active Substance: ARIPIPRAZOLE
     Dosage: 22MAR-24MAR13?26MAR13-27MAR13
     Route: 048
     Dates: start: 20130322, end: 20130327
  2. TRUXAL [Concomitant]
     Active Substance: CHLORPROTHIXENE
     Route: 048
  3. VALDOXAN [Concomitant]
     Active Substance: AGOMELATINE
     Route: 048
     Dates: start: 20130323
  4. OXAZEPAM. [Concomitant]
     Active Substance: OXAZEPAM
     Route: 048
     Dates: start: 20130321, end: 20130323
  5. ASPIRIN. [Concomitant]
     Active Substance: ASPIRIN
     Route: 048
     Dates: start: 20130323
  6. SEROQUEL [Concomitant]
     Active Substance: QUETIAPINE FUMARATE
     Dosage: SEROQUEL PROLONG
     Route: 048
  7. SEROQUEL [Concomitant]
     Active Substance: QUETIAPINE FUMARATE
     Route: 048

REACTIONS (2)
  - Aggression [Recovered/Resolved]
  - Tension [Unknown]

NARRATIVE: CASE EVENT DATE: 20130324
